FAERS Safety Report 22820050 (Version 5)
Quarter: 2023Q4

REPORT INFORMATION
  Report Type: Spontaneous
  Country: JP (occurrence: JP)
  Receive Date: 20230814
  Receipt Date: 20231011
  Transmission Date: 20240110
  Serious: No
  Sender: FDA-Public Use
  Company Number: JP-PFIZER INC-PV202300133059

PATIENT
  Age: 10 Year
  Sex: Male
  Weight: 28.7 kg

DRUGS (3)
  1. NGENLA [Suspect]
     Active Substance: SOMATROGON-GHLA
     Indication: Growth hormone deficiency
     Dosage: 18.5 MG
     Route: 058
     Dates: start: 20230713
  2. NGENLA [Suspect]
     Active Substance: SOMATROGON-GHLA
     Indication: Dwarfism
  3. OLOPATADINE [Concomitant]
     Active Substance: OLOPATADINE
     Indication: Rhinitis allergic
     Dosage: 5 MG, 2 TABLETS/2 X1
     Route: 048
     Dates: start: 20230306

REACTIONS (1)
  - Injection site pain [Unknown]

NARRATIVE: CASE EVENT DATE: 20230727
